FAERS Safety Report 20713525 (Version 1)
Quarter: 2022Q2

REPORT INFORMATION
  Report Type: Spontaneous
  Country: US (occurrence: None)
  Receive Date: 20220414
  Receipt Date: 20220414
  Transmission Date: 20220720
  Serious: No
  Sender: FDA-Public Use
  Company Number: None

PATIENT
  Age: 35 Year
  Sex: Female
  Weight: 85.5 kg

DRUGS (1)
  1. STELARA [Suspect]
     Active Substance: USTEKINUMAB
     Indication: Crohn^s disease
     Route: 042
     Dates: start: 20220401, end: 20220401

REACTIONS (11)
  - Infusion related reaction [None]
  - Arthralgia [None]
  - Joint swelling [None]
  - Joint swelling [None]
  - Joint swelling [None]
  - Joint swelling [None]
  - Back pain [None]
  - Fatigue [None]
  - Migraine [None]
  - Abdominal pain [None]
  - Pyrexia [None]

NARRATIVE: CASE EVENT DATE: 20220401
